FAERS Safety Report 5508974-2 (Version None)
Quarter: 2007Q4

REPORT INFORMATION
  Report Type: 
  Country: None (occurrence: None)
  Receive Date: 20071031
  Receipt Date: 20070818
  Transmission Date: 20080405
  Serious: No
  Sender: FDA-Public Use
  Company Number: 2007PV033319

PATIENT
  Sex: Female
  Weight: 152.4086 kg

DRUGS (4)
  1. SYMLIN [Suspect]
     Indication: DIABETES MELLITUS
     Dosage: 120 MCG;TID;SC
     Route: 058
  2. LANTUS [Concomitant]
  3. HUMALOG [Concomitant]
  4. ^PSYCH MEDS^ [Concomitant]

REACTIONS (2)
  - DECREASED APPETITE [None]
  - WEIGHT DECREASED [None]
